FAERS Safety Report 9506289 (Version 2)
Quarter: 2014Q1

REPORT INFORMATION
  Report Type: Spontaneous
  Country: US (occurrence: None)
  Receive Date: 20130301
  Receipt Date: 20140304
  Transmission Date: 20141002
  Serious: Yes (Hospitalization)
  Sender: FDA-Public Use
  Company Number: RB-41397-2012

PATIENT
  Age: 33 Year
  Sex: Male

DRUGS (3)
  1. SUBOXONE [Suspect]
     Indication: DRUG DEPENDENCE
     Dosage: 1-2 TABLETS  A DAY SUBLINGUAL
     Dates: start: 2010, end: 201206
  2. SUBOXONE [Suspect]
     Indication: DRUG DEPENDENCE
     Dosage: SUBOXONE FILM
  3. SUBUTEX [Suspect]
     Indication: DRUG DEPENDENCE
     Dosage: TOOK 1 TABLET, DAILY
     Dates: start: 20120610, end: 20120612

REACTIONS (5)
  - Substance abuse [None]
  - Detoxification [None]
  - Back pain [None]
  - Anxiety [None]
  - Insomnia [None]
